FAERS Safety Report 19835975 (Version 2)
Quarter: 2022Q3

REPORT INFORMATION
  Report Type: Spontaneous
  Country: FR (occurrence: FR)
  Receive Date: 20210916
  Receipt Date: 20220902
  Transmission Date: 20221027
  Serious: Yes (Other)
  Sender: FDA-Public Use
  Company Number: FR-AFSSAPS-NY20213909

PATIENT
  Age: 82 Year
  Sex: Male
  Weight: 100 kg

DRUGS (10)
  1. REPAGLINIDE [Suspect]
     Active Substance: REPAGLINIDE
     Indication: Type 2 diabetes mellitus
     Dosage: 1 MG 3X / DAY
     Route: 048
     Dates: end: 20210811
  2. ADENURIC 80 mg, coated tablet [Concomitant]
     Indication: Hyperuricaemia
     Dosage: 1 DOSAGE FORM, DAILY
     Route: 048
  3. CLOPIDOGREL BESILATE [Concomitant]
     Active Substance: CLOPIDOGREL BESILATE
     Indication: Cerebrovascular accident prophylaxis
     Dosage: 1 DOSAGE FORM, DAILY
     Route: 048
  4. IRBESARTAN [Concomitant]
     Active Substance: IRBESARTAN
     Indication: Hypertension
     Dosage: 300 MILLIGRAM, DAILY
     Route: 048
  5. POTASSIUM CHLORIDE [Concomitant]
     Active Substance: POTASSIUM CHLORIDE
     Indication: Hypokalaemia
     Dosage: 2 DOSAGE FORM, DAILY
     Route: 048
  6. FUROSEMIDE [Concomitant]
     Active Substance: FUROSEMIDE
     Indication: Hypertension
     Dosage: 40 MILLIGRAM, DAILY
     Route: 048
  7. METFORMIN HYDROCHLORIDE [Concomitant]
     Active Substance: METFORMIN HYDROCHLORIDE
     Indication: Type 2 diabetes mellitus
     Dosage: 2000 MILLIGRAM, DAILY
     Route: 048
  8. ONBREZ BREEZHALER 300 micrograms inhalation powder, hard capsule [Concomitant]
     Indication: Chronic respiratory failure
     Dosage: 1 DOSAGE FORM, DAILY
     Route: 055
  9. PRAVASTATIN [Concomitant]
     Active Substance: PRAVASTATIN
     Indication: Carotid arteriosclerosis
     Dosage: 40 MILLIGRAM, DAILY
     Route: 048
  10. SEEBRI BREEZHALER 44 micrograms inhalation powder, hard capsule [Concomitant]
     Indication: Chronic respiratory failure
     Dosage: 1 DOSAGE FORM, DAILY
     Route: 055

REACTIONS (1)
  - Hypoglycaemia [Recovered/Resolved]

NARRATIVE: CASE EVENT DATE: 20210809
